FAERS Safety Report 15240226 (Version 1)
Quarter: 2018Q3

REPORT INFORMATION
  Report Type: Spontaneous
  Country: SE (occurrence: SE)
  Receive Date: 20180804
  Receipt Date: 20180804
  Transmission Date: 20181010
  Serious: Yes (Hospitalization)
  Sender: FDA-Public Use
  Company Number: SE-ACCORD-070467

PATIENT
  Age: 71 Year
  Sex: Male

DRUGS (1)
  1. TOPIRAMATE. [Suspect]
     Active Substance: TOPIRAMATE
     Indication: PRODUCT USED FOR UNKNOWN INDICATION
     Dates: start: 20171208, end: 20171211

REACTIONS (2)
  - Productive cough [Recovered/Resolved with Sequelae]
  - Wheezing [Recovered/Resolved with Sequelae]

NARRATIVE: CASE EVENT DATE: 20171208
